FAERS Safety Report 5032416-7 (Version None)
Quarter: 2006Q2

REPORT INFORMATION
  Report Type: 
  Country: None (occurrence: None)
  Receive Date: 20060621
  Receipt Date: 20060621
  Transmission Date: 20061013
  Serious: Yes (Life-Threatening, Hospitalization)
  Sender: FDA-Public Use
  Company Number: None

PATIENT
  Age: 37 Year
  Sex: Male
  Weight: 95.2554 kg

DRUGS (2)
  1. PAXIL [Suspect]
     Indication: DEPRESSION
     Dosage: 10 MG   ONCE DAILY   PO
     Route: 048
     Dates: start: 20020101, end: 20031020
  2. PAXIL [Suspect]
     Indication: DIVORCED
     Dosage: 10 MG   ONCE DAILY   PO
     Route: 048
     Dates: start: 20020101, end: 20031020

REACTIONS (6)
  - CRYING [None]
  - DEPRESSION [None]
  - DISSOCIATION [None]
  - DISTURBANCE IN ATTENTION [None]
  - FEELING ABNORMAL [None]
  - SUICIDE ATTEMPT [None]
